FAERS Safety Report 5494080-2 (Version None)
Quarter: 2007Q4

REPORT INFORMATION
  Report Type: 
  Country: None (occurrence: None)
  Receive Date: 20071023
  Receipt Date: 20071017
  Transmission Date: 20080405
  Serious: Yes (Other)
  Sender: FDA-Public Use
  Company Number: JP-PFIZER INC-2007087671

PATIENT
  Sex: Female

DRUGS (1)
  1. ATARAX [Suspect]
     Route: 030
     Dates: start: 20070901, end: 20070901

REACTIONS (1)
  - INJECTION SITE ULCER [None]
